FAERS Safety Report 17499296 (Version 1)
Quarter: 2020Q1

REPORT INFORMATION
  Report Type: Spontaneous
  Country: JP (occurrence: JP)
  Receive Date: 20200304
  Receipt Date: 20200304
  Transmission Date: 20200409
  Serious: Yes (Other)
  Sender: FDA-Public Use
  Company Number: JP-BAUSCH-BL-2020-000148

PATIENT
  Age: 60 Year
  Sex: Male

DRUGS (1)
  1. VERTEPORFIN [Suspect]
     Active Substance: VERTEPORFIN
     Indication: POLYPOIDAL CHOROIDAL VASCULOPATHY
     Route: 042
     Dates: start: 20180615

REACTIONS (3)
  - Polypoidal choroidal vasculopathy [Unknown]
  - Disease progression [Unknown]
  - Detachment of retinal pigment epithelium [Recovering/Resolving]

NARRATIVE: CASE EVENT DATE: 20180906
